FAERS Safety Report 8394936 (Version 4)
Quarter: 2014Q1

REPORT INFORMATION
  Report Type: Spontaneous
  Country: US (occurrence: US)
  Receive Date: 20120208
  Receipt Date: 20140116
  Transmission Date: 20141002
  Serious: Yes (Hospitalization)
  Sender: FDA-Public Use
  Company Number: US-BAYER-2012-011530

PATIENT
  Age: 21 Year
  Sex: Female
  Weight: 65.76 kg

DRUGS (16)
  1. YASMIN [Suspect]
     Indication: CONTRACEPTION
     Dosage: UNK
     Dates: start: 20051216, end: 20071230
  2. OCELLA [Suspect]
     Dosage: UNK
     Dates: start: 20090105, end: 20100202
  3. MINOCYCLINE [Concomitant]
  4. LAMOTRIGINE [Concomitant]
     Indication: AFFECTIVE DISORDER
  5. PANTOPRAZOLE [Concomitant]
     Indication: GASTRIC PH DECREASED
  6. NASAL DECONGESTANTS FOR SYSTEMIC USE [Concomitant]
     Indication: SEASONAL ALLERGY
  7. ANALGESICS [Concomitant]
     Indication: HEADACHE
  8. ANTI-ASTHMATICS [Concomitant]
  9. PROTONIX [Concomitant]
     Dosage: UNK UNK, PRN
  10. ADVAIR [Concomitant]
     Dosage: UNK UNK, PRN
  11. RESPA-ARM [Concomitant]
     Indication: SEASONAL ALLERGY
     Route: 048
  12. LAMICTAL [Concomitant]
     Route: 048
  13. NAPROXEN [Concomitant]
     Dosage: UNK
     Route: 048
     Dates: start: 20100106
  14. ALBUTEROL [Concomitant]
     Dosage: UNK
     Route: 048
     Dates: start: 20100106
  15. KEFLEX [Concomitant]
     Indication: ACNE
  16. EXCEDRIN [CAFFEINE,PARACETAMOL] [Concomitant]

REACTIONS (4)
  - Cholecystitis chronic [None]
  - Injury [None]
  - Pain [None]
  - Abdominal pain upper [None]
